FAERS Safety Report 4347028-8 (Version None)
Quarter: 2004Q2

REPORT INFORMATION
  Report Type: 
  Country: None (occurrence: None)
  Receive Date: 20040426
  Receipt Date: 20040414
  Transmission Date: 20050107
  Serious: Yes (Death, Hospitalization)
  Sender: FDA-Public Use
  Company Number: ES-BRISTOL-MYERS SQUIBB COMPANY-12561437

PATIENT
  Age: 83 Year
  Sex: Male
  Weight: 82 kg

DRUGS (9)
  1. TAXOL [Suspect]
     Indication: NON-SMALL CELL LUNG CANCER
     Route: 042
     Dates: start: 20040302, end: 20040302
  2. DISGREN [Concomitant]
  3. NIMOTOP [Concomitant]
  4. AMIODARONE HCL [Concomitant]
  5. DOGMATIL [Concomitant]
  6. PRITOR [Concomitant]
  7. MOVICOL [Concomitant]
  8. PLAVIX [Concomitant]
  9. IRON [Concomitant]

REACTIONS (2)
  - DIARRHOEA [None]
  - FEBRILE NEUTROPENIA [None]
